FAERS Safety Report 5709933-7 (Version None)
Quarter: 2008Q2

REPORT INFORMATION
  Report Type: 
  Country: None (occurrence: None)
  Receive Date: 20080418
  Receipt Date: 20080408
  Transmission Date: 20081010
  Serious: Yes (Other)
  Sender: FDA-Public Use
  Company Number: JP-ELI_LILLY_AND_COMPANY-JP200802006853

PATIENT
  Age: 77 Year
  Sex: Female

DRUGS (11)
  1. EVISTA [Suspect]
     Indication: OSTEOPOROSIS
     Dosage: 60 MG, DAILY (1/D)
     Route: 048
     Dates: start: 20060622, end: 20080208
  2. EVISTA [Suspect]
     Dosage: 60 MG, DAILY (1/D)
     Route: 048
  3. THYRADIN S [Concomitant]
  4. ASPIRIN [Concomitant]
  5. MERISLON [Concomitant]
  6. FLUNITRAZEPAM [Concomitant]
  7. NORVASC [Concomitant]
  8. FUROSEMIDE [Concomitant]
  9. OMEPRAZOLE [Concomitant]
  10. SENNARIDE [Concomitant]
  11. SOLANAX [Concomitant]

REACTIONS (2)
  - BLOOD CALCIUM DECREASED [None]
  - BLOOD PARATHYROID HORMONE INCREASED [None]
